FAERS Safety Report 8136510-3 (Version None)
Quarter: 2012Q1

REPORT INFORMATION
  Report Type: 
  Country: None (occurrence: None)
  Receive Date: 20120214
  Receipt Date: 20120203
  Transmission Date: 20120608
  Serious: Yes (Hospitalization)
  Sender: FDA-Public Use
  Company Number: PHHY2012DE009696

PATIENT
  Sex: Female
  Weight: 16 kg

DRUGS (1)
  1. METHERGINE [Suspect]
     Dosage: 5 ML, UNK
     Route: 048
     Dates: start: 20100419, end: 20100419

REACTIONS (1)
  - ACCIDENTAL EXPOSURE [None]
